FAERS Safety Report 6439673-0 (Version None)
Quarter: 2009Q4

REPORT INFORMATION
  Report Type: 
  Country: None (occurrence: None)
  Receive Date: 20091113
  Receipt Date: 20091102
  Transmission Date: 20100525
  Serious: Yes (Life-Threatening)
  Sender: FDA-Public Use
  Company Number: DK-PFIZER INC-2009291425

PATIENT
  Age: 92 Year
  Sex: Female

DRUGS (1)
  1. GABAPENTIN [Suspect]
     Dosage: 300 MG, 1X/DAY
     Dates: start: 20091020, end: 20091020

REACTIONS (4)
  - GENERALISED OEDEMA [None]
  - HYPERSENSITIVITY [None]
  - MALAISE [None]
  - MUSCULOSKELETAL STIFFNESS [None]
